FAERS Safety Report 18129114 (Version 3)
Quarter: 2020Q4

REPORT INFORMATION
  Report Type: Other
  Country: US (occurrence: US)
  Receive Date: 20200810
  Receipt Date: 20201011
  Transmission Date: 20210113
  Serious: No
  Sender: FDA-Public Use
  Company Number: US-ROCHE-2655249

PATIENT
  Age: 63 Year
  Sex: Female
  Weight: 76.73 kg

DRUGS (13)
  1. PROPRANOLOL [Concomitant]
     Active Substance: PROPRANOLOL HYDROCHLORIDE
     Indication: TREMOR
     Route: 048
  2. FISH OIL [Concomitant]
     Active Substance: FISH OIL
     Route: 048
     Dates: start: 2018
  3. OCREVUS [Suspect]
     Active Substance: OCRELIZUMAB
     Indication: RELAPSING MULTIPLE SCLEROSIS
     Dosage: DATE OF MOST RECENT INFUSION- 24/JAN/2020, ONGOING- NO
     Route: 042
     Dates: start: 20200110
  4. KETOCONAZOLE. [Concomitant]
     Active Substance: KETOCONAZOLE
     Indication: DERMATITIS ATOPIC
     Dosage: 3 TO 4 TIMES PER WEEK
     Route: 061
     Dates: start: 20191217
  5. VITAMIN C [Concomitant]
     Active Substance: ASCORBIC ACID
     Route: 048
     Dates: start: 201909
  6. MYRBETRIQ [Suspect]
     Active Substance: MIRABEGRON
     Indication: BLADDER DISORDER
     Route: 048
     Dates: start: 201909
  7. ESTRADIOL. [Concomitant]
     Active Substance: ESTRADIOL
     Route: 067
     Dates: start: 201801
  8. SENNA PLUS [Concomitant]
     Active Substance: DOCUSATE SODIUM\SENNOSIDES\SENNOSIDES A AND B
     Indication: CONSTIPATION
     Dosage: SENNA 8.6 MG DOCUSATE 50 MG,
     Route: 048
     Dates: start: 2019
  9. EVENING PRIMEROSE OIL [Concomitant]
     Dates: start: 2015
  10. KETOCONAZOLE. [Concomitant]
     Active Substance: KETOCONAZOLE
     Route: 061
     Dates: start: 20191217
  11. VITAMIN D3 [Concomitant]
     Active Substance: CHOLECALCIFEROL
     Indication: VITAMIN D DECREASED
     Route: 048
     Dates: start: 201812
  12. BIOTIN [Concomitant]
     Active Substance: BIOTIN
     Route: 048
     Dates: start: 201908
  13. LYSINE [Concomitant]
     Active Substance: LYSINE
     Route: 048
     Dates: start: 2015

REACTIONS (2)
  - Oral candidiasis [Not Recovered/Not Resolved]
  - Oral candidiasis [Not Recovered/Not Resolved]

NARRATIVE: CASE EVENT DATE: 20200729
